FAERS Safety Report 25180000 (Version 2)
Quarter: 2025Q2

REPORT INFORMATION
  Report Type: Spontaneous
  Country: FR (occurrence: FR)
  Receive Date: 20250409
  Receipt Date: 20250423
  Transmission Date: 20250717
  Serious: Yes (Hospitalization, Other)
  Sender: PFIZER
  Company Number: None

PATIENT
  Age: 53 Year
  Sex: Male

DRUGS (17)
  1. CYTARABINE [Suspect]
     Active Substance: CYTARABINE
     Route: 042
     Dates: start: 20091220, end: 20100109
  2. CYTARABINE [Suspect]
     Active Substance: CYTARABINE
     Dates: start: 20100111
  3. CISPLATIN [Concomitant]
     Active Substance: CISPLATIN
     Indication: Lymphoma
     Dates: start: 20091219
  4. CISPLATIN [Concomitant]
     Active Substance: CISPLATIN
     Dates: start: 20100111
  5. CISPLATIN [Concomitant]
     Active Substance: CISPLATIN
  6. DEXAMETHASONE SODIUM PHOSPHATE [Concomitant]
     Active Substance: DEXAMETHASONE SODIUM PHOSPHATE
     Indication: Lymphoma
     Dosage: T1 TO T3: 40 MG, DAILY
     Dates: start: 20091219
  7. DEXAMETHASONE SODIUM PHOSPHATE [Concomitant]
     Active Substance: DEXAMETHASONE SODIUM PHOSPHATE
     Dosage: 2ND COURSE
     Dates: start: 20100111
  8. MABTHERA [Concomitant]
     Active Substance: RITUXIMAB
     Indication: Lymphoma
     Dates: start: 20091219
  9. MABTHERA [Concomitant]
     Active Substance: RITUXIMAB
     Dates: start: 20100111
  10. MABTHERA [Concomitant]
     Active Substance: RITUXIMAB
     Dates: start: 20100211
  11. DAPSONE\FERROUS OXALATE [Concomitant]
     Active Substance: DAPSONE\FERROUS OXALATE
     Dates: start: 20091225, end: 20100112
  12. PLAVIX [Concomitant]
     Active Substance: CLOPIDOGREL BISULFATE
  13. ALLOPURINOL [Concomitant]
     Active Substance: ALLOPURINOL
  14. VALACYCLOVIR HYDROCHLORIDE [Concomitant]
     Active Substance: VALACYCLOVIR HYDROCHLORIDE
  15. FOLIC ACID [Concomitant]
     Active Substance: FOLIC ACID
     Dosage: UNK, 2X/DAY
  16. INIPOMP [Concomitant]
     Active Substance: PANTOPRAZOLE SODIUM
  17. BACTRIM [Concomitant]
     Active Substance: SULFAMETHOXAZOLE\TRIMETHOPRIM
     Indication: Prophylaxis
     Dates: start: 20091219, end: 20091225

REACTIONS (15)
  - Malaise [Recovered/Resolved]
  - Pyrexia [Recovered/Resolved]
  - Dermatitis exfoliative generalised [Recovered/Resolved]
  - Hypotension [Recovered/Resolved]
  - Dyspnoea [Recovered/Resolved]
  - Vomiting [Recovered/Resolved]
  - Dysarthria [Recovered/Resolved]
  - Dizziness [Recovered/Resolved]
  - Loss of consciousness [Unknown]
  - Angioedema [Unknown]
  - Cerebellar syndrome [Unknown]
  - Chills [Unknown]
  - Asthenia [Unknown]
  - Rash erythematous [Unknown]
  - Rash maculo-papular [Unknown]

NARRATIVE: CASE EVENT DATE: 20091224
